FAERS Safety Report 21933468 (Version 2)
Quarter: 2023Q2

REPORT INFORMATION
  Report Type: Spontaneous
  Country: US (occurrence: US)
  Receive Date: 20230201
  Receipt Date: 20230525
  Transmission Date: 20230721
  Serious: No
  Sender: FDA-Public Use
  Company Number: US-TOLMAR, INC.-23US038427

PATIENT
  Sex: Male

DRUGS (2)
  1. KETOCONAZOLE [Suspect]
     Active Substance: KETOCONAZOLE
     Indication: Skin infection
     Dosage: UNK UNK, 2/WEEK
     Route: 003
     Dates: start: 202203, end: 202212
  2. MINOXIDIL [Suspect]
     Active Substance: MINOXIDIL
     Indication: Product used for unknown indication
     Dosage: UNK
     Route: 003
     Dates: start: 202203, end: 202212

REACTIONS (2)
  - Pruritus [Recovered/Resolved]
  - Off label use [Unknown]
